FAERS Safety Report 9109900 (Version 1)
Quarter: 2013Q1

REPORT INFORMATION
  Report Type: Spontaneous
  Country: BR (occurrence: BR)
  Receive Date: 20130222
  Receipt Date: 20130222
  Transmission Date: 20140127
  Serious: Yes (Other)
  Sender: FDA-Public Use
  Company Number: BR-ASTRAZENECA-2013SE11159

PATIENT
  Age: 68 Year
  Sex: Female
  Weight: 59 kg

DRUGS (9)
  1. OMEPRAZOLE [Suspect]
     Indication: HIATUS HERNIA
     Dosage: DAILY
     Route: 048
  2. SEROQUEL [Suspect]
     Indication: BIPOLAR DISORDER
     Route: 048
     Dates: start: 2008, end: 201301
  3. KITAPEN [Suspect]
     Indication: BIPOLAR DISORDER
     Route: 048
     Dates: start: 201301, end: 201301
  4. KITAPEN [Suspect]
     Indication: BIPOLAR DISORDER
     Route: 048
     Dates: start: 201301
  5. TYLEX [Suspect]
     Indication: SPINAL PAIN
     Route: 048
     Dates: start: 201208
  6. TRILEPTAL [Concomitant]
     Indication: NEURALGIA
     Route: 048
     Dates: start: 201201
  7. VITAMIN D [Concomitant]
     Route: 048
  8. FRONTAL [Concomitant]
     Indication: ANXIETY
     Route: 048
     Dates: start: 201301
  9. FRONTAL [Concomitant]
     Indication: INSOMNIA
     Route: 048
     Dates: start: 201301

REACTIONS (5)
  - Spinal meningeal cyst [Not Recovered/Not Resolved]
  - Neuralgia [Recovering/Resolving]
  - Anxiety [Recovering/Resolving]
  - Insomnia [Recovering/Resolving]
  - Constipation [Not Recovered/Not Resolved]
